FAERS Safety Report 4313192-X (Version None)
Quarter: 2004Q1

REPORT INFORMATION
  Report Type: 
  Country: None (occurrence: None)
  Receive Date: 20040308
  Receipt Date: 20031210
  Transmission Date: 20041129
  Serious: Yes (Death, Disabling, Other)
  Sender: FDA-Public Use
  Company Number: JP-BRISTOL-MYERS SQUIBB COMPANY-12455937

PATIENT
  Age: 69 Year
  Sex: Male

DRUGS (5)
  1. TAXOL [Suspect]
     Indication: LUNG NEOPLASM MALIGNANT
     Route: 042
     Dates: start: 20031128, end: 20031128
  2. PARAPLATIN [Suspect]
     Indication: LUNG NEOPLASM MALIGNANT
     Route: 042
     Dates: start: 20031128, end: 20031128
  3. DECADRON [Concomitant]
     Route: 042
     Dates: start: 20031128, end: 20031128
  4. NASEA [Concomitant]
     Dosage: DOSAGE = A (AMPULE)
     Route: 042
     Dates: start: 20031128, end: 20031128
  5. ZANTAC [Concomitant]
     Dosage: DOSAGE = A (AMPULE)
     Route: 042
     Dates: start: 20031128, end: 20031128

REACTIONS (18)
  - BALANCE DISORDER [None]
  - BLOOD PRESSURE DECREASED [None]
  - CHEST PAIN [None]
  - DYSPNOEA [None]
  - EPISTAXIS [None]
  - HAEMOPTYSIS [None]
  - HEPATIC FUNCTION ABNORMAL [None]
  - INTERSTITIAL LUNG DISEASE [None]
  - JAUNDICE [None]
  - MALAISE [None]
  - MULTI-ORGAN FAILURE [None]
  - MYALGIA [None]
  - OEDEMA PERIPHERAL [None]
  - PALLOR [None]
  - PERIPHERAL COLDNESS [None]
  - PLATELET COUNT DECREASED [None]
  - STRIDOR [None]
  - WHITE BLOOD CELL COUNT DECREASED [None]
